FAERS Safety Report 10619969 (Version 3)
Quarter: 2015Q3

REPORT INFORMATION
  Report Type: Spontaneous
  Country: JP (occurrence: JP)
  Receive Date: 20141202
  Receipt Date: 20150821
  Transmission Date: 20151125
  Serious: Yes (Hospitalization)
  Sender: FDA-Public Use
  Company Number: JP-BAYER-2014-172643

PATIENT
  Age: 78 Year
  Sex: Female

DRUGS (2)
  1. BAYASPIRIN [Suspect]
     Active Substance: ASPIRIN
     Indication: PERIPHERAL ARTERIAL OCCLUSIVE DISEASE
     Dosage: UNK
     Route: 048
  2. PLAVIX [Concomitant]
     Active Substance: CLOPIDOGREL BISULFATE
     Indication: PERIPHERAL ARTERIAL OCCLUSIVE DISEASE
     Route: 048

REACTIONS (5)
  - Escherichia infection [None]
  - Pyrexia [Recovering/Resolving]
  - Haematuria [Recovering/Resolving]
  - Anaemia [Recovering/Resolving]
  - Emphysematous cystitis [Recovering/Resolving]
